FAERS Safety Report 5730403-4 (Version None)
Quarter: 2008Q2

REPORT INFORMATION
  Report Type: 
  Country: None (occurrence: None)
  Receive Date: 20080505
  Receipt Date: 20080505
  Transmission Date: 20081010
  Serious: Yes (Other)
  Sender: FDA-Public Use
  Company Number: None

PATIENT
  Sex: Female
  Weight: 108.8633 kg

DRUGS (1)
  1. GLUCOPHAGE [Suspect]
     Indication: TYPE 2 DIABETES MELLITUS
     Dosage: 500MG  MORNING AND EVENIN  PO
     Route: 048
     Dates: start: 19991007, end: 20000414

REACTIONS (5)
  - DRUG DOSE OMISSION [None]
  - FATIGUE [None]
  - IMPAIRED WORK ABILITY [None]
  - MENORRHAGIA [None]
  - VAGINAL HAEMORRHAGE [None]
